FAERS Safety Report 16819131 (Version 7)
Quarter: 2020Q2

REPORT INFORMATION
  Report Type: Spontaneous
  Country: JP (occurrence: JP)
  Receive Date: 20190917
  Receipt Date: 20200403
  Transmission Date: 20200713
  Serious: Yes (Death, Hospitalization, Other)
  Sender: FDA-Public Use
  Company Number: JP-ASTRAZENECA-2019SE90155

PATIENT
  Age: 25964 Day
  Sex: Male
  Weight: 52 kg

DRUGS (4)
  1. XARELTO [Suspect]
     Active Substance: RIVAROXABAN
     Indication: DEEP VEIN THROMBOSIS
     Dosage: UNKNOWN
     Route: 065
     Dates: start: 20190510, end: 20190515
  2. TAGRISSO [Suspect]
     Active Substance: OSIMERTINIB
     Indication: NON-SMALL CELL LUNG CANCER
     Route: 048
     Dates: start: 20181220, end: 20190109
  3. TAGRISSO [Suspect]
     Active Substance: OSIMERTINIB
     Indication: NON-SMALL CELL LUNG CANCER
     Route: 048
     Dates: start: 20190214, end: 20190520
  4. TAGRISSO [Suspect]
     Active Substance: OSIMERTINIB
     Indication: NON-SMALL CELL LUNG CANCER
     Route: 048
     Dates: start: 20181031, end: 20181219

REACTIONS (15)
  - Dyspnoea [Fatal]
  - Sepsis [Unknown]
  - Haematuria [Recovered/Resolved]
  - Cardiac arrest [Fatal]
  - Deep vein thrombosis [Not Recovered/Not Resolved]
  - Pancreatic enzymes increased [Recovered/Resolved]
  - Tachycardia [Not Recovered/Not Resolved]
  - Urinary tract infection [Recovered/Resolved]
  - Constipation [Not Recovered/Not Resolved]
  - Respiratory failure [Fatal]
  - Malignant neoplasm progression [Unknown]
  - General physical health deterioration [Fatal]
  - Interstitial lung disease [Fatal]
  - Blood pressure decreased [Not Recovered/Not Resolved]
  - Paronychia [Recovered/Resolved]

NARRATIVE: CASE EVENT DATE: 20181220
